FAERS Safety Report 14228628 (Version 1)
Quarter: 2017Q4

REPORT INFORMATION
  Report Type: Spontaneous
  Country: US (occurrence: None)
  Receive Date: 20171124
  Receipt Date: 20171124
  Transmission Date: 20180321
  Serious: Yes (Hospitalization)
  Sender: FDA-Public Use
  Company Number: None

PATIENT
  Age: 83 Year
  Sex: Male

DRUGS (22)
  1. COLACE [Concomitant]
     Active Substance: DOCUSATE SODIUM
  2. VITAMIN K2 [Concomitant]
     Active Substance: MENAQUINONE 6
  3. VITAMIN C [Concomitant]
     Active Substance: ASCORBIC ACID
  4. CITRACAL [Concomitant]
     Active Substance: CALCIUM CITRATE
  5. TYLENOL [Concomitant]
     Active Substance: ACETAMINOPHEN
  6. PRIMIDONE. [Concomitant]
     Active Substance: PRIMIDONE
  7. GENTAM/NACL [Concomitant]
  8. GABAPENTIN. [Concomitant]
     Active Substance: GABAPENTIN
  9. BIOTIN [Concomitant]
     Active Substance: BIOTIN
  10. DULCOLAX NOS [Concomitant]
     Active Substance: BISACODYL OR DOCUSATE SODIUM
  11. FLOVENT [Concomitant]
     Active Substance: FLUTICASONE PROPIONATE
  12. METHYLPRED [Concomitant]
     Active Substance: METHYLPREDNISOLONE
  13. PHENYTOIN. [Suspect]
     Active Substance: PHENYTOIN
  14. LAMISIL [Concomitant]
     Active Substance: TERBINAFINE HYDROCHLORIDE
  15. DILANTIN [Suspect]
     Active Substance: PHENYTOIN
  16. VENTOLIN HFA [Concomitant]
     Active Substance: ALBUTEROL SULFATE
  17. A-HYDROCORT [Concomitant]
     Active Substance: HYDROCORTISONE SODIUM SUCCINATE
  18. TEA [Concomitant]
     Active Substance: TEA LEAF
  19. FLUTICASONE. [Concomitant]
     Active Substance: FLUTICASONE
  20. COCONUT OIL [Concomitant]
     Active Substance: COCONUT OIL
  21. TARCEVA [Suspect]
     Active Substance: ERLOTINIB HYDROCHLORIDE
     Indication: LUNG NEOPLASM MALIGNANT
     Route: 048
     Dates: start: 20140127
  22. MIRALAX [Concomitant]
     Active Substance: POLYETHYLENE GLYCOL 3350

REACTIONS (4)
  - Nephrolithiasis [None]
  - Kidney infection [None]
  - Rash [None]
  - Cystitis [None]

NARRATIVE: CASE EVENT DATE: 20171122
